FAERS Safety Report 22160970 (Version 1)
Quarter: 2023Q1

REPORT INFORMATION
  Report Type: Spontaneous
  Country: US (occurrence: None)
  Receive Date: 20230330
  Receipt Date: 20230330
  Transmission Date: 20230417
  Serious: Yes (Death)
  Sender: FDA-Public Use
  Company Number: None

PATIENT
  Age: 63 Year
  Sex: Male
  Weight: 102.06 kg

DRUGS (9)
  1. REBIF [Suspect]
     Active Substance: INTERFERON BETA-1A
     Indication: Multiple sclerosis
     Dosage: FREQUENCY : 3 TIMES A WEEK;?
     Route: 048
     Dates: start: 201711, end: 202212
  2. ALLOPURINOL [Concomitant]
  3. AMITRIPYTLINE [Concomitant]
  4. CARVEDILOL [Concomitant]
  5. CELEBREX [Concomitant]
     Active Substance: CELECOXIB
  6. GABAPENTIN [Concomitant]
  7. MODERNA COVD-19 VACCINE [Concomitant]
  8. NIFEDIPINE [Concomitant]
     Active Substance: NIFEDIPINE
  9. PERCOCET [Concomitant]
     Active Substance: ACETAMINOPHEN\OXYCODONE HYDROCHLORIDE

REACTIONS (1)
  - Death [None]
